FAERS Safety Report 6397979-8 (Version None)
Quarter: 2009Q4

REPORT INFORMATION
  Report Type: 
  Country: None (occurrence: None)
  Receive Date: 20091013
  Receipt Date: 20091006
  Transmission Date: 20100525
  Serious: Yes (Other)
  Sender: FDA-Public Use
  Company Number: US-JNJFOC-20091002266

PATIENT
  Sex: Female
  Weight: 51.26 kg

DRUGS (3)
  1. TOPAMAX [Suspect]
     Indication: MIGRAINE PROPHYLAXIS
     Route: 048
  2. MAGNESIUM [Concomitant]
     Indication: MIGRAINE
  3. RIBOFLAVIN TAB [Concomitant]
     Indication: MIGRAINE

REACTIONS (2)
  - AGEUSIA [None]
  - ANOSMIA [None]
